FAERS Safety Report 7045843-3 (Version None)
Quarter: 2010Q4

REPORT INFORMATION
  Report Type: 
  Country: None (occurrence: None)
  Receive Date: 20101014
  Receipt Date: 20100921
  Transmission Date: 20110411
  Serious: Yes (Hospitalization)
  Sender: FDA-Public Use
  Company Number: PHHY2010BR66343

PATIENT
  Age: 74 Year
  Sex: Female

DRUGS (9)
  1. ALISKIREN [Suspect]
     Dosage: 150 MG, UNK
  2. ALISKIREN [Suspect]
     Dosage: 300 MG, UNK
  3. METOPROLOL [Suspect]
     Dosage: 200 MG/DAY
  4. LEVOTHYROXINE [Concomitant]
     Dosage: 125 ?G/DAY
  5. CLOPIDOGREL [Concomitant]
     Dosage: 75 MG/DAY
  6. ATORVASTATIN [Concomitant]
     Dosage: 40 MG/DAY
  7. ALPRAZOLAM [Concomitant]
     Dosage: 0.5 MG, UNK
  8. PROPATYLNITRATE [Concomitant]
     Dosage: 40 MG/DAY
  9. ESCITALOPRAM [Concomitant]

REACTIONS (1)
  - HYPONATRAEMIA [None]
